FAERS Safety Report 4815368-1 (Version None)
Quarter: 2005Q4

REPORT INFORMATION
  Report Type: 
  Country: None (occurrence: None)
  Receive Date: 20051027
  Receipt Date: 20051013
  Transmission Date: 20060501
  Serious: Yes (Death)
  Sender: FDA-Public Use
  Company Number: 2005RL000147

PATIENT
  Age: 44 Year
  Sex: 0

DRUGS (3)
  1. INNOPRAN XL [Suspect]
     Dosage: PO
     Route: 048
     Dates: end: 20040101
  2. BUPROPION HCL [Suspect]
     Dosage: PO
     Route: 048
     Dates: start: 20040101
  3. LITHIUM [Suspect]
     Dosage: PO
     Route: 048
     Dates: end: 20040101

REACTIONS (2)
  - CARDIO-RESPIRATORY ARREST [None]
  - COMPLETED SUICIDE [None]
